FAERS Safety Report 18459220 (Version 1)
Quarter: 2020Q4

REPORT INFORMATION
  Report Type: Spontaneous
  Country: GB (occurrence: GB)
  Receive Date: 20201103
  Receipt Date: 20201103
  Transmission Date: 20210114
  Serious: Yes (Other)
  Sender: FDA-Public Use
  Company Number: NVSC2020GB288845

PATIENT
  Age: 70 Year
  Sex: Female

DRUGS (1)
  1. ETANERCEPT [Suspect]
     Active Substance: ETANERCEPT
     Indication: RHEUMATOID ARTHRITIS
     Dosage: UNK
     Route: 065

REACTIONS (7)
  - Therapeutic product effect incomplete [Unknown]
  - Osteoarthritis [Unknown]
  - Spondylitis [Unknown]
  - Rheumatoid arthritis [Unknown]
  - Fungal skin infection [Unknown]
  - Injection site pain [Unknown]
  - Erythema [Unknown]
